FAERS Safety Report 6137213-7 (Version None)
Quarter: 2009Q1

REPORT INFORMATION
  Report Type: 
  Country: None (occurrence: None)
  Receive Date: 20090330
  Receipt Date: 20090319
  Transmission Date: 20090719
  Serious: Yes (Other)
  Sender: FDA-Public Use
  Company Number: PHEH2009US02789

PATIENT
  Sex: Female

DRUGS (8)
  1. ZOMETA [Suspect]
     Indication: MULTIPLE MYELOMA
     Dosage: 4 MG, QMO
     Route: 042
     Dates: start: 20061001, end: 20080401
  2. LASIX [Concomitant]
  3. INDERAL [Concomitant]
  4. HYZAAR [Concomitant]
  5. LEXAPRO [Concomitant]
  6. SYNTHROID [Concomitant]
  7. ZOCOR [Concomitant]
  8. BUSPIRONE HCL [Concomitant]

REACTIONS (2)
  - BONE DISORDER [None]
  - PURULENT DISCHARGE [None]
